FAERS Safety Report 9485739 (Version 1)
Quarter: 2013Q3

REPORT INFORMATION
  Report Type: Spontaneous
  Country: US (occurrence: None)
  Receive Date: 20130821
  Receipt Date: 20130821
  Transmission Date: 20140515
  Serious: Yes (Other)
  Sender: FDA-Public Use
  Company Number: ACO_38005_2013

PATIENT
  Age: 66 Year
  Sex: Female

DRUGS (1)
  1. AMPYRA (DALFAMPRIDINE) [Suspect]
     Indication: PRODUCT USED FOR UNKNOWN INDICATION

REACTIONS (2)
  - Arthropathy [None]
  - Paraesthesia [None]
